FAERS Safety Report 12056920 (Version 3)
Quarter: 2018Q1

REPORT INFORMATION
  Report Type: Report from Study
  Country: GB (occurrence: GB)
  Receive Date: 20160210
  Receipt Date: 20180312
  Transmission Date: 20180508
  Serious: Yes (Death)
  Sender: FDA-Public Use
  Company Number: GB-ROCHE-1708181

PATIENT
  Sex: Male

DRUGS (1)
  1. TOCILIZUMAB. [Suspect]
     Active Substance: TOCILIZUMAB
     Indication: RHEUMATOID ARTHRITIS
     Route: 065
     Dates: start: 20130219

REACTIONS (5)
  - Myocardial ischaemia [Fatal]
  - Type 2 diabetes mellitus [Fatal]
  - Peripheral vascular disorder [Fatal]
  - Myocardial infarction [Fatal]
  - Cellulitis [Fatal]
